FAERS Safety Report 8978270 (Version 2)
Quarter: 2013Q4

REPORT INFORMATION
  Report Type: Spontaneous
  Country: GB (occurrence: GB)
  Receive Date: 20121220
  Receipt Date: 20131022
  Transmission Date: 20140711
  Serious: Yes (Death, Congenital Anomaly, Other)
  Sender: FDA-Public Use
  Company Number: GB-WATSON-2012-22285

PATIENT
  Sex: Male

DRUGS (1)
  1. RAMIPRIL (UNKNOWN) [Suspect]
     Indication: HYPERTENSION
     Dosage: 5 MG, DAILY
     Route: 064
     Dates: end: 20120829

REACTIONS (9)
  - Foetal death [Fatal]
  - Foetal growth restriction [Not Recovered/Not Resolved]
  - Placental insufficiency [Not Recovered/Not Resolved]
  - Drug prescribing error [Not Recovered/Not Resolved]
  - Small for dates baby [Not Recovered/Not Resolved]
  - Cell death [Not Recovered/Not Resolved]
  - Foetal death [Not Recovered/Not Resolved]
  - Amniotic cavity infection [Not Recovered/Not Resolved]
  - Placental infarction [Not Recovered/Not Resolved]
